FAERS Safety Report 14099032 (Version 3)
Quarter: 2021Q4

REPORT INFORMATION
  Report Type: Spontaneous
  Country: US (occurrence: None)
  Receive Date: 20171017
  Receipt Date: 20211216
  Transmission Date: 20220303
  Serious: Yes (Death)
  Sender: FDA-Public Use
  Company Number: 2017SF05750

PATIENT
  Age: 14 Year
  Sex: Female
  Weight: 50.3 kg

DRUGS (11)
  1. SEROQUEL [Suspect]
     Active Substance: QUETIAPINE FUMARATE
     Route: 048
     Dates: start: 20021125
  2. SEROQUEL [Suspect]
     Active Substance: QUETIAPINE FUMARATE
     Route: 048
     Dates: start: 20020909
  3. SEROQUEL [Suspect]
     Active Substance: QUETIAPINE FUMARATE
     Dosage: HALF TABLET AS MORNING AND AFTERNOON AND ONE TABLET AT BEDTIME
     Route: 048
  4. SEROQUEL [Suspect]
     Active Substance: QUETIAPINE FUMARATE
     Dosage: HALF TABLET AS MORNING AND AFTERNOON AND ONE TABLET AT BEDTIME
     Route: 048
     Dates: start: 20040505
  5. SEROQUEL [Suspect]
     Active Substance: QUETIAPINE FUMARATE
     Dosage: HALF TABLET AS MORNING AND AFTERNOON AND ONE TABLET AT BEDTIME
     Route: 048
     Dates: start: 20020812
  6. SEROQUEL [Suspect]
     Active Substance: QUETIAPINE FUMARATE
     Dosage: HALF TABLET AS MORNING AND AFTERNOON AND ONE TABLET AT BEDTIME
     Route: 048
     Dates: start: 20040922
  7. DEPAKOTE ER [Concomitant]
     Active Substance: DIVALPROEX SODIUM
     Dosage: AT NIGHT AND MORNING
     Dates: start: 20020812
  8. DEPAKOTE ER [Concomitant]
     Active Substance: DIVALPROEX SODIUM
     Dates: start: 20020909
  9. ZYPREXA [Concomitant]
     Active Substance: OLANZAPINE
  10. RISPERIDONE [Concomitant]
     Active Substance: RISPERIDONE
  11. RISPERIDONE [Concomitant]
     Active Substance: RISPERIDONE
     Dates: start: 20040708

REACTIONS (2)
  - Toxicity to various agents [Fatal]
  - Acute pulmonary oedema [Fatal]
